FAERS Safety Report 10046634 (Version 1)
Quarter: 2014Q1

REPORT INFORMATION
  Report Type: Spontaneous
  Country: US (occurrence: None)
  Receive Date: 20140328
  Receipt Date: 20140328
  Transmission Date: 20141002
  Serious: Yes (Other)
  Sender: FDA-Public Use
  Company Number: None

PATIENT
  Age: 66 Year
  Sex: Female
  Weight: 74.39 kg

DRUGS (21)
  1. ALBUTEROL SULFATE [Suspect]
     Indication: ASTHMA
     Dosage: 1 AMPULE IN NEBULIZER CUP ?EVERY 6 HRS AS NEEDED FOR WHEEZING OR SHORTNESS OF BREATH ??
     Route: 048
     Dates: start: 20130815, end: 20140302
  2. ALBUTEROL SULFATE [Suspect]
     Indication: CHRONIC OBSTRUCTIVE PULMONARY DISEASE
     Dosage: 1 AMPULE IN NEBULIZER CUP ?EVERY 6 HRS AS NEEDED FOR WHEEZING OR SHORTNESS OF BREATH ??
     Route: 048
     Dates: start: 20130815, end: 20140302
  3. OMEPRAZOLE [Concomitant]
  4. MONTELUKAST [Concomitant]
  5. XOPENEX INHALER [Concomitant]
  6. FLOVENT INHALER [Concomitant]
  7. FEXOFENADINE [Concomitant]
  8. FLUTICASONE NASAL SPRAY [Concomitant]
  9. GLIMEPIRIDE [Concomitant]
  10. CLOBESTASOL [Concomitant]
  11. MECLIZINE [Concomitant]
  12. ASPIRIN [Concomitant]
  13. VITAMIN E [Concomitant]
  14. MULTI VITAMIN [Concomitant]
  15. CYCLOBENZOPRINE [Concomitant]
  16. METOCLOPRAM [Concomitant]
  17. DIPHENL/ATROP [Concomitant]
  18. TRAMADOL/HCL [Concomitant]
  19. LORAZEPAM [Concomitant]
  20. NEBULIZER [Concomitant]
  21. SLEEP APNEA MACHINE [Concomitant]

REACTIONS (9)
  - Heart rate increased [None]
  - Tremor [None]
  - Headache [None]
  - Chest discomfort [None]
  - Cough [None]
  - Bronchitis chronic [None]
  - Wheezing [None]
  - Drug ineffective [None]
  - Product quality issue [None]
